FAERS Safety Report 14854291 (Version 1)
Quarter: 2018Q2

REPORT INFORMATION
  Report Type: Spontaneous
  Country: GB (occurrence: GB)
  Receive Date: 20180507
  Receipt Date: 20180507
  Transmission Date: 20180711
  Serious: Yes (Hospitalization)
  Sender: FDA-Public Use
  Company Number: GB-LPDUSPRD-20180760

PATIENT
  Age: 34 Year
  Sex: Female

DRUGS (1)
  1. FERINJECT [Suspect]
     Active Substance: FERRIC CARBOXYMALTOSE
     Dosage: 1000MG/20ML (1 GM)
     Route: 040

REACTIONS (4)
  - Tremor [Unknown]
  - Syncope [Unknown]
  - Hypophosphataemia [Unknown]
  - Fatigue [Unknown]

NARRATIVE: CASE EVENT DATE: 20180329
